FAERS Safety Report 7679311-2 (Version None)
Quarter: 2011Q3

REPORT INFORMATION
  Report Type: 
  Country: None (occurrence: None)
  Receive Date: 20110809
  Receipt Date: 20110725
  Transmission Date: 20111222
  Serious: Yes (Hospitalization)
  Sender: FDA-Public Use
  Company Number: 2011-2371

PATIENT
  Age: 63 Year
  Sex: Female
  Weight: 38 kg

DRUGS (10)
  1. AMITRIPTYLINE HCL [Concomitant]
  2. FORTICREME SUPPLEMENTARY DRINKS (ALL OTHER NON-THERAPEUTIC PRODUCTS) [Concomitant]
  3. ROTIGOTINE PATCH (ROTIGOTINE) [Concomitant]
  4. APO-GO AMPOULES (APO-GO) (APOMORPHINE HYDROCHLORIDE) (APOMORPHINE HYDR [Suspect]
     Indication: PRODUCT USED FOR UNKNOWN INDICATION
     Dosage: 4.5 MG, HOUR GIVEN OVER 22 HOURS, PARENTERAL
     Dates: start: 20101201
  5. SINEMET [Concomitant]
  6. BACLOFEN [Concomitant]
  7. CALOGEN DRINK (CALCITONIN, SALMON) [Concomitant]
  8. DOMPERIDONE (DOMPERIDONE) [Concomitant]
  9. CLONAZEPAM [Concomitant]
  10. MADOPAR (MADOPAR) [Concomitant]

REACTIONS (4)
  - INJECTION SITE ERYTHEMA [None]
  - INJECTION SITE NODULE [None]
  - INJECTION SITE HAEMORRHAGE [None]
  - INJECTION SITE HAEMATOMA [None]
